FAERS Safety Report 17338302 (Version 1)
Quarter: 2020Q1

REPORT INFORMATION
  Report Type: Spontaneous
  Country: JP (occurrence: JP)
  Receive Date: 20200129
  Receipt Date: 20200129
  Transmission Date: 20200409
  Serious: Yes (Death, Other)
  Sender: FDA-Public Use
  Company Number: PHJP2019JP009267

PATIENT
  Age: 51 Year
  Sex: Female
  Weight: 44.4 kg

DRUGS (7)
  1. SOMATULINE [Concomitant]
     Active Substance: LANREOTIDE ACETATE
     Indication: NEUROENDOCRINE TUMOUR
     Dosage: 120 MG, QD
     Route: 058
     Dates: start: 20180920, end: 20190408
  2. AFINITOR [Suspect]
     Active Substance: EVEROLIMUS
     Indication: NEUROENDOCRINE TUMOUR
     Dosage: 7.5 MG, QD
     Route: 048
     Dates: start: 20180921, end: 20181004
  3. AFINITOR [Suspect]
     Active Substance: EVEROLIMUS
     Dosage: 7.5 MG, QD
     Route: 048
     Dates: start: 20181026, end: 20181104
  4. CLINDAMYCIN. [Concomitant]
     Active Substance: CLINDAMYCIN
     Indication: CELLULITIS
     Dosage: 600 MG, TID
     Route: 042
     Dates: start: 20181009, end: 20181108
  5. CEFMETAZOLE SODIUM [Concomitant]
     Active Substance: CEFMETAZOLE SODIUM
     Indication: CELLULITIS
     Dosage: 1.0 G, BID
     Route: 042
     Dates: start: 20180926, end: 20181002
  6. BETANIS [Concomitant]
     Active Substance: MIRABEGRON
     Indication: HYPERTONIC BLADDER
     Dosage: 50 MG, QD
     Route: 048
     Dates: start: 20181005, end: 20190410
  7. CEFAZOLIN SODIUM. [Concomitant]
     Active Substance: CEFAZOLIN SODIUM
     Indication: CELLULITIS
     Dosage: 1.0 G, BID
     Route: 042
     Dates: start: 20181004, end: 20181023

REACTIONS (10)
  - Cellulitis [Unknown]
  - Platelet count decreased [Recovered/Resolved]
  - Hypertonic bladder [Unknown]
  - Neuroendocrine tumour [Fatal]
  - Intestinal metastasis [Fatal]
  - Tumour haemorrhage [Fatal]
  - Disseminated intravascular coagulation [Fatal]
  - Malignant neoplasm progression [Fatal]
  - Multiple organ dysfunction syndrome [Fatal]
  - Platelet count decreased [Unknown]

NARRATIVE: CASE EVENT DATE: 20181004
